FAERS Safety Report 8381052-3 (Version None)
Quarter: 2012Q2

REPORT INFORMATION
  Report Type: 
  Country: None (occurrence: None)
  Receive Date: 20120523
  Receipt Date: 20120516
  Transmission Date: 20120825
  Serious: Yes (Other)
  Sender: FDA-Public Use
  Company Number: JP-PFIZER INC-2012117232

PATIENT
  Sex: Female

DRUGS (4)
  1. LYRICA [Suspect]
     Dosage: 75 MG, 1X/DAY
     Route: 048
     Dates: start: 20120515
  2. LYRICA [Suspect]
     Indication: CANCER PAIN
     Dosage: 150 MG, 1X/DAY
     Route: 048
     Dates: end: 20120514
  3. MINOCYCLINE HYDROCHLORIDE [Concomitant]
     Dosage: UNK
     Dates: end: 20120514
  4. VOLTAREN - SLOW RELEASE ^CIBA-GEIGY^ [Concomitant]
     Dosage: UNK
     Dates: end: 20120514

REACTIONS (2)
  - RENAL IMPAIRMENT [None]
  - SOMNOLENCE [None]
